FAERS Safety Report 8243626-X (Version None)
Quarter: 2012Q1

REPORT INFORMATION
  Report Type: 
  Country: None (occurrence: None)
  Receive Date: 20120315
  Receipt Date: 20100408
  Transmission Date: 20120608
  Serious: Yes (Other)
  Sender: FDA-Public Use
  Company Number: PHHY2010US22346

PATIENT
  Sex: Male
  Weight: 166.4 kg

DRUGS (8)
  1. FANAPT [Suspect]
     Indication: BIPOLAR DISORDER
     Dosage: 12 MG, QD, ORAL
     Route: 048
     Dates: start: 20100311, end: 20100325
  2. FANAPT [Suspect]
     Indication: PSYCHOTIC DISORDER
     Dosage: 12 MG, QD, ORAL
     Route: 048
     Dates: start: 20100311, end: 20100325
  3. ABILIFY [Concomitant]
  4. ZONEGRAN [Concomitant]
  5. INSULIN [Concomitant]
  6. LORTAB [Suspect]
     Dosage: 500 MG, BID
  7. SEROQUEL [Concomitant]
  8. CLONAPIN (CLONAZEPAM) [Concomitant]

REACTIONS (4)
  - DYSPNOEA [None]
  - FATIGUE [None]
  - HEART RATE INCREASED [None]
  - BLOOD GLUCOSE INCREASED [None]
